FAERS Safety Report 8092251-2 (Version None)
Quarter: 2012Q1

REPORT INFORMATION
  Report Type: 
  Country: None (occurrence: None)
  Receive Date: 20120129
  Receipt Date: 20111104
  Transmission Date: 20120608
  Serious: Yes (Other)
  Sender: FDA-Public Use
  Company Number: US-ABBOTT-11P-163-0871785-00

PATIENT
  Sex: Female
  Weight: 83.99 kg

DRUGS (13)
  1. ALLEGRA [Concomitant]
     Indication: HYPERSENSITIVITY
  2. TOPAMAX [Concomitant]
     Indication: BIPOLAR DISORDER
  3. LEVOTHYROXINE SODIUM [Concomitant]
     Indication: HYPOTHYROIDISM
  4. WELLBUTRIN [Concomitant]
     Indication: BIPOLAR DISORDER
  5. LAMICTAL [Concomitant]
     Indication: BIPOLAR DISORDER
  6. HUMIRA [Suspect]
     Indication: BEHCET'S SYNDROME
     Dates: start: 20020101, end: 20090901
  7. TRAZODONE HCL [Concomitant]
     Indication: BIPOLAR DISORDER
  8. DARVOCET [Concomitant]
     Indication: ARTHRALGIA
  9. PREMARIN [Concomitant]
     Indication: HORMONE REPLACEMENT THERAPY
  10. TOPAMAX [Concomitant]
     Indication: MIGRAINE
  11. SEROQUEL [Concomitant]
     Indication: BIPOLAR DISORDER
  12. PROCARDIA [Concomitant]
     Indication: RAYNAUD'S PHENOMENON
  13. PRED FORTE [Concomitant]
     Indication: IRITIS
     Route: 047

REACTIONS (3)
  - IDIOPATHIC THROMBOCYTOPENIC PURPURA [None]
  - OFF LABEL USE [None]
  - INJECTION SITE PAIN [None]
